FAERS Safety Report 5275177-9 (Version None)
Quarter: 2007Q1

REPORT INFORMATION
  Report Type: 
  Country: None (occurrence: None)
  Receive Date: 20070320
  Receipt Date: 20070309
  Transmission Date: 20070707
  Serious: Yes (Disabling)
  Sender: FDA-Public Use
  Company Number: 153870ISR

PATIENT
  Age: 25 Year
  Sex: Male

DRUGS (2)
  1. AMITRIPTYLINE HCL [Suspect]
     Indication: HERPES ZOSTER
     Dosage: ?? ORAL
     Route: 048
     Dates: start: 20061113, end: 20061122
  2. ACYCLOVIR [Suspect]
     Indication: POST HERPETIC NEURALGIA
     Dosage: 10 MG (10 MG, 1 IN 1 D) ORAL
     Route: 048
     Dates: start: 20061123, end: 20061207

REACTIONS (2)
  - DEAFNESS [None]
  - IMPAIRED WORK ABILITY [None]
